FAERS Safety Report 9758359 (Version 1)
Quarter: 2013Q4

REPORT INFORMATION
  Report Type: Spontaneous
  Country: US (occurrence: US)
  Receive Date: 20131216
  Receipt Date: 20131216
  Transmission Date: 20140711
  Serious: Yes (Hospitalization, Other)
  Sender: FDA-Public Use
  Company Number: US-SHIRE-ALL1-2013-08640

PATIENT
  Age: 11 Year
  Sex: Male

DRUGS (4)
  1. INTUNIV [Suspect]
     Indication: PRODUCT USED FOR UNKNOWN INDICATION
     Dosage: 3 MG, 1X/DAY:QD
     Route: 048
     Dates: start: 2013
  2. INTUNIV [Suspect]
     Dosage: 3 MG, 1X/DAY:QD
     Route: 048
     Dates: start: 2013, end: 2013
  3. INTUNIV [Suspect]
     Dosage: 1 MG, 1X/DAY:QD
     Route: 048
     Dates: end: 2013
  4. WELLBUTRIN [Concomitant]
     Indication: PRODUCT USED FOR UNKNOWN INDICATION
     Dosage: UNK, UNKNOWN
     Route: 065

REACTIONS (3)
  - Pancreatitis [Unknown]
  - Somnolence [Unknown]
  - Inappropriate schedule of drug administration [Unknown]
